FAERS Safety Report 23625634 (Version 1)
Quarter: 2024Q1

REPORT INFORMATION
  Report Type: Other
  Country: CN (occurrence: None)
  Receive Date: 20240313
  Receipt Date: 20240313
  Transmission Date: 20240410
  Serious: Yes (Other)
  Sender: FDA-Public Use
  Company Number: CN-ROCHE-3520583

PATIENT

DRUGS (7)
  1. PERTUZUMAB [Suspect]
     Active Substance: PERTUZUMAB
     Indication: HER2 positive breast cancer
     Dosage: LOADING DOSE FOLLOWED BY MAINTENANCE DOSE FROM CYCLE 2 TO CYCLE 4
     Route: 042
  2. PERTUZUMAB [Suspect]
     Active Substance: PERTUZUMAB
     Dosage: MAINTENANCE DOSE
     Route: 042
  3. DOCETAXEL [Suspect]
     Active Substance: DOCETAXEL\DOCETAXEL ANHYDROUS
     Indication: HER2 positive breast cancer
     Dosage: 1 TREATMENT CYCLE OF 3 WEEKS, USED FOR A TOTAL OF 4 CYCLES.
     Route: 042
  4. TRASTUZUMAB [Suspect]
     Active Substance: TRASTUZUMAB
     Indication: HER2 positive breast cancer
     Dosage: TREATMENT CYCLE 1 OF 3 WEEKS, ADMINISTERED ON DAY 1 OF EACH CYCLE. A TOTAL OF 4 CYCLES WERE USED, WI
     Route: 042
  5. TRASTUZUMAB [Suspect]
     Active Substance: TRASTUZUMAB
     Dosage: MAINTENANCE DOSE CYCLES 2 TO 4
     Route: 042
  6. PERTUZUMAB [Suspect]
     Active Substance: PERTUZUMAB
     Indication: HER2 positive breast cancer
     Dosage: 1 TREATMENT CYCLE OF 3 WEEKS, ADMINISTERED ON THE FIRST DAY OF EACH CYCLE, FOR A TOTAL OF 4 CYCLES L
     Route: 042
  7. PERTUZUMAB [Suspect]
     Active Substance: PERTUZUMAB
     Dosage: CYCLES 2 TO 4 MAINTENANCE DOSE
     Route: 042

REACTIONS (14)
  - Leukopenia [Unknown]
  - Neutropenia [Unknown]
  - Myelosuppression [Unknown]
  - Lymphopenia [Unknown]
  - Anaemia [Unknown]
  - Febrile neutropenia [Unknown]
  - Alopecia [Unknown]
  - Diarrhoea [Unknown]
  - Mouth ulceration [Unknown]
  - Rash [Unknown]
  - Asthenia [Unknown]
  - Constipation [Unknown]
  - Pyrexia [Unknown]
  - Vomiting [Unknown]
